FAERS Safety Report 7305622-6 (Version None)
Quarter: 2011Q1

REPORT INFORMATION
  Report Type: 
  Country: None (occurrence: None)
  Receive Date: 20110222
  Receipt Date: 20110210
  Transmission Date: 20110831
  Serious: Yes (Hospitalization, Other)
  Sender: FDA-Public Use
  Company Number: US-ROCHE-727614

PATIENT
  Sex: Male
  Weight: 84.4 kg

DRUGS (1)
  1. ACCUTANE [Suspect]
     Indication: ACNE
     Route: 065
     Dates: start: 19990901, end: 20000301

REACTIONS (6)
  - COLITIS ULCERATIVE [None]
  - SUICIDAL IDEATION [None]
  - GASTROINTESTINAL DISORDER [None]
  - DEPRESSION [None]
  - INFLAMMATORY BOWEL DISEASE [None]
  - APHTHOUS STOMATITIS [None]
